FAERS Safety Report 15140762 (Version 1)
Quarter: 2018Q3

REPORT INFORMATION
  Report Type: Spontaneous
  Country: US (occurrence: US)
  Receive Date: 20180713
  Receipt Date: 20180713
  Transmission Date: 20181010
  Serious: No
  Sender: FDA-Public Use
  Company Number: US-ASTELLAS-2017US045274

PATIENT
  Age: 90 Year
  Sex: Female

DRUGS (2)
  1. MYRBETRIQ [Suspect]
     Active Substance: MIRABEGRON
     Indication: INCONTINENCE
     Route: 048
     Dates: start: 201509, end: 201610
  2. MYRBETRIQ [Suspect]
     Active Substance: MIRABEGRON
     Dosage: 75 MG (50MG 1 AND 1/2 TABLET), ONCE DAILY
     Route: 048
     Dates: start: 201610, end: 201709

REACTIONS (4)
  - Overdose [Unknown]
  - Intentional product misuse [Unknown]
  - Drug ineffective [Unknown]
  - Wrong technique in product usage process [Unknown]
